FAERS Safety Report 21380890 (Version 1)
Quarter: 2022Q3

REPORT INFORMATION
  Report Type: Spontaneous
  Country: US (occurrence: None)
  Receive Date: 20220923
  Receipt Date: 20220923
  Transmission Date: 20221027
  Serious: Yes (Hospitalization)
  Sender: FDA-Public Use
  Company Number: None

PATIENT
  Sex: Female

DRUGS (2)
  1. ZARXIO [Suspect]
     Active Substance: FILGRASTIM-SNDZ
     Indication: Breast cancer female
     Dosage: OTHER QUANTITY : 480MCG/0.8ML;?FREQUENCY : AS DIRECTED;?
     Route: 058
     Dates: start: 20220816
  2. ZARXIO [Suspect]
     Active Substance: FILGRASTIM-SNDZ
     Dosage: OTHER QUANTITY : 1 SYRINGE;?FREQUENCY : AS DIRECTED;?
     Route: 058

REACTIONS (1)
  - Hospitalisation [None]
